FAERS Safety Report 13205267 (Version 1)
Quarter: 2017Q1

REPORT INFORMATION
  Report Type: Spontaneous
  Country: FR (occurrence: FR)
  Receive Date: 20170209
  Receipt Date: 20170209
  Transmission Date: 20170428
  Serious: Yes (Other)
  Sender: FDA-Public Use
  Company Number: FR-PFIZER INC-2017050305

PATIENT
  Age: 51 Year
  Sex: Female

DRUGS (1)
  1. TRIFLUCAN [Suspect]
     Active Substance: FLUCONAZOLE
     Indication: GASTROINTESTINAL CANDIDIASIS
     Dosage: 100 MG, 2X/DAY
     Route: 048
     Dates: start: 20161024, end: 20161103

REACTIONS (8)
  - Headache [Recovered/Resolved]
  - Decreased appetite [Recovered/Resolved]
  - Dystonia [Recovering/Resolving]
  - Hallucination, auditory [Recovering/Resolving]
  - Dizziness [Recovered/Resolved]
  - General physical health deterioration [Recovered/Resolved]
  - Weight decreased [Recovered/Resolved]
  - Vomiting [Recovered/Resolved]

NARRATIVE: CASE EVENT DATE: 201611
